FAERS Safety Report 19708781 (Version 1)
Quarter: 2021Q3

REPORT INFORMATION
  Report Type: Spontaneous
  Country: BE (occurrence: BE)
  Receive Date: 20210817
  Receipt Date: 20210817
  Transmission Date: 20211014
  Serious: Yes (Disabling)
  Sender: FDA-Public Use
  Company Number: BE-GLAXOSMITHKLINE-BE2021171993

PATIENT
  Age: 59 Year
  Sex: Female

DRUGS (2)
  1. RELVAR ELLIPTA [Suspect]
     Active Substance: FLUTICASONE FUROATE\VILANTEROL TRIFENATATE
     Indication: ASTHMA
     Dosage: 1 DF, QD  1X / DAY DYSPNOEA FOR A FEW MONTHS UNKNOWN
     Route: 055
     Dates: start: 20210601, end: 20210802
  2. RELVAR ELLIPTA [Concomitant]
     Active Substance: FLUTICASONE FUROATE\VILANTEROL TRIFENATATE
     Indication: PRODUCT USED FOR UNKNOWN INDICATION
     Dosage: (SINGLE DOSE) ELLIPTA 3X30DOS., POWDER FOR INHALATION IN SINGLE DOSE CONTAINER
     Route: 065

REACTIONS (1)
  - Dyspnoea [Recovering/Resolving]
